FAERS Safety Report 10606571 (Version 5)
Quarter: 2014Q4

REPORT INFORMATION
  Report Type: Spontaneous
  Country: US (occurrence: US)
  Receive Date: 20141125
  Receipt Date: 20141230
  Transmission Date: 20150529
  Serious: Yes (Hospitalization, Other)
  Sender: FDA-Public Use
  Company Number: US-SANOFI-AVENTIS-2012SA058278

PATIENT
  Age: 68 Year
  Sex: Male
  Weight: 65.77 kg

DRUGS (46)
  1. CRESTOR [Concomitant]
     Active Substance: ROSUVASTATIN CALCIUM
     Indication: CHEST PAIN
     Route: 048
  2. TRILIPIX [Concomitant]
     Active Substance: FENOFIBRIC ACID
  3. NITROQUICK [Concomitant]
     Active Substance: NITROGLYCERIN
  4. TAMSULOSIN HYDROCHLORIDE. [Concomitant]
     Active Substance: TAMSULOSIN HYDROCHLORIDE
     Indication: CHEST PAIN
  5. NITRO-DUR [Concomitant]
     Active Substance: NITROGLYCERIN
     Indication: NAUSEA
     Dosage: 1 PATCH TO SKIN (TOPICALLY) DAILY AS NEEDED FOR NAUSEA APPLY IN THE AM, REMOYE AT NIGHT
     Route: 061
     Dates: end: 20140804
  6. PHENERGAN [Concomitant]
     Active Substance: PROMETHAZINE HYDROCHLORIDE
     Indication: NAUSEA
     Route: 048
     Dates: end: 20131129
  7. FLOMAX [Concomitant]
     Active Substance: TAMSULOSIN HYDROCHLORIDE
  8. AUGMENTIN [Concomitant]
     Active Substance: AMOXICILLIN\CLAVULANATE POTASSIUM
     Indication: VOMITING
     Route: 048
     Dates: end: 20131122
  9. CRESTOR [Concomitant]
     Active Substance: ROSUVASTATIN CALCIUM
     Indication: CHEST PAIN
     Dates: end: 20140804
  10. NIASPAN [Concomitant]
     Active Substance: NIACIN
  11. KAPIDEX [Concomitant]
     Active Substance: DEXLANSOPRAZOLE
  12. DEXILANT [Concomitant]
     Active Substance: DEXLANSOPRAZOLE
  13. LACTOBACILLUS ACIDOPHILUS [Concomitant]
     Active Substance: LACTOBACILLUS ACIDOPHILUS
     Indication: NAUSEA
     Route: 048
     Dates: end: 20140804
  14. NEXIUM [Concomitant]
     Active Substance: ESOMEPRAZOLE MAGNESIUM
     Indication: CHEST PAIN
     Dosage: 1X DAILY
     Route: 048
     Dates: end: 20140804
  15. NEXIUM [Concomitant]
     Active Substance: ESOMEPRAZOLE MAGNESIUM
     Indication: CHEST PAIN
     Dosage: 1X DAILY
     Route: 048
     Dates: end: 20131129
  16. IMDUR [Concomitant]
     Active Substance: ISOSORBIDE MONONITRATE
     Indication: NAUSEA
     Dates: end: 20141025
  17. PHENERGAN [Concomitant]
     Active Substance: PROMETHAZINE HYDROCHLORIDE
     Indication: NAUSEA
     Route: 042
     Dates: end: 20141028
  18. PEPCID [Concomitant]
     Active Substance: FAMOTIDINE
  19. LEVAQUIN [Concomitant]
     Active Substance: LEVOFLOXACIN
     Indication: DYSPNOEA
     Route: 048
     Dates: end: 20140804
  20. FENOFIBRATE. [Concomitant]
     Active Substance: FENOFIBRATE
     Indication: DYSPNOEA
     Dosage: EVERY MORNING AS NEEDED
     Dates: end: 20140804
  21. PHENERGAN [Concomitant]
     Active Substance: PROMETHAZINE HYDROCHLORIDE
     Indication: VOMITING
     Route: 042
     Dates: end: 20141028
  22. XANAX [Concomitant]
     Active Substance: ALPRAZOLAM
  23. ALBUTEROL. [Concomitant]
     Active Substance: ALBUTEROL
     Indication: DYSPNOEA
     Dosage: DOSE: 2 PUFF EVERY 4 HOURS AS NEEDED
     Route: 055
  24. TYLENOL [Concomitant]
     Active Substance: ACETAMINOPHEN
  25. TAMSULOSIN HYDROCHLORIDE. [Concomitant]
     Active Substance: TAMSULOSIN HYDROCHLORIDE
     Indication: CHEST PAIN
     Route: 048
  26. IMDUR [Concomitant]
     Active Substance: ISOSORBIDE MONONITRATE
     Indication: NAUSEA
     Route: 048
     Dates: end: 20140804
  27. ZOFRAN [Concomitant]
     Active Substance: ONDANSETRON HYDROCHLORIDE
     Indication: NAUSEA
     Route: 048
     Dates: end: 20140804
  28. MORPHINE SULFATE. [Concomitant]
     Active Substance: MORPHINE SULFATE
     Indication: NAUSEA
     Route: 048
     Dates: end: 20140804
  29. TRILIPIX [Concomitant]
     Active Substance: FENOFIBRIC ACID
     Indication: NAUSEA
     Route: 048
     Dates: end: 20131129
  30. TRILIPIX [Concomitant]
     Active Substance: FENOFIBRIC ACID
     Indication: VOMITING
     Route: 048
     Dates: end: 20131129
  31. NITROSTAT [Concomitant]
     Active Substance: NITROGLYCERIN
  32. ALPRAZOLAM. [Concomitant]
     Active Substance: ALPRAZOLAM
     Indication: DYSPNOEA
     Dosage: 2X DAILY
     Dates: end: 20140804
  33. ASPIRIN. [Concomitant]
     Active Substance: ASPIRIN
     Indication: DYSPNOEA
     Route: 048
     Dates: end: 20140804
  34. ISOSORBIDE [Concomitant]
     Active Substance: ISOSORBIDE
     Dosage: 1X DAILY
     Route: 048
  35. LOMOTIL [Concomitant]
     Active Substance: ATROPINE SULFATE\DIPHENOXYLATE HYDROCHLORIDE
     Indication: DIARRHOEA
     Route: 048
  36. AMOXICILLIN. [Concomitant]
     Active Substance: AMOXICILLIN
     Indication: DYSPNOEA
     Route: 048
     Dates: end: 20140804
  37. PLAVIX [Suspect]
     Active Substance: CLOPIDOGREL BISULFATE
     Indication: ARTERIAL OCCLUSIVE DISEASE
     Route: 048
     Dates: start: 200609, end: 20110822
  38. NORVASC [Concomitant]
     Active Substance: AMLODIPINE BESYLATE
  39. HYDROMORPHONE [Concomitant]
     Active Substance: HYDROMORPHONE
     Dosage: 3X DAILY
  40. GABAPENTIN. [Concomitant]
     Active Substance: GABAPENTIN
     Indication: NAUSEA
     Dosage: 3X DAILY
     Route: 048
     Dates: end: 20140804
  41. LEVOTHYROXINE [Concomitant]
     Active Substance: LEVOTHYROXINE
     Dosage: 1X DAILY
     Route: 048
     Dates: end: 20140804
  42. AUGMENTIN [Concomitant]
     Active Substance: AMOXICILLIN\CLAVULANATE POTASSIUM
     Indication: NAUSEA
     Route: 048
     Dates: end: 20131122
  43. RANEXA [Concomitant]
     Active Substance: RANOLAZINE
     Indication: DYSPNOEA
     Dosage: 2X DAILY
     Route: 048
     Dates: end: 20140804
  44. DILAUDID [Concomitant]
     Active Substance: HYDROMORPHONE HYDROCHLORIDE
     Indication: NAUSEA
     Route: 048
     Dates: end: 20141021
  45. MORPHINE SULFATE. [Concomitant]
     Active Substance: MORPHINE SULFATE
     Indication: NAUSEA
     Route: 042
     Dates: end: 20141028
  46. PHENERGAN [Concomitant]
     Active Substance: PROMETHAZINE HYDROCHLORIDE
     Indication: VOMITING
     Route: 048
     Dates: end: 20131129

REACTIONS (21)
  - Rectal cancer [Recovering/Resolving]
  - Rectal polyp [Recovering/Resolving]
  - Chest pain [Recovered/Resolved]
  - Abdominal pain [Recovering/Resolving]
  - Rectal haemorrhage [Recovered/Resolved]
  - Asthenia [Recovered/Resolved]
  - Pelvic abscess [Recovered/Resolved]
  - Anaemia [Unknown]
  - Weight decreased [Recovered/Resolved]
  - Injury [Unknown]
  - Haemoglobin decreased [Recovered/Resolved]
  - Haematochezia [Unknown]
  - Constipation [Recovered/Resolved]
  - Small intestinal obstruction [Recovered/Resolved]
  - Gastrointestinal haemorrhage [Recovered/Resolved]
  - Nausea [Recovering/Resolving]
  - Abdominal distension [Recovering/Resolving]
  - Vomiting [Recovering/Resolving]
  - Pancreatitis acute [Recovering/Resolving]
  - Dizziness [Recovered/Resolved]
  - Decreased appetite [Recovered/Resolved]
